FAERS Safety Report 6711604-5 (Version None)
Quarter: 2010Q3

REPORT INFORMATION
  Report Type: 
  Country: None (occurrence: None)
  Receive Date: 20100504
  Receipt Date: 20100504
  Transmission Date: 20110219
  Serious: Yes (Life-Threatening)
  Sender: FDA-Public Use
  Company Number: None

PATIENT
  Age: 60 Year
  Sex: Male
  Weight: 97.5234 kg

DRUGS (3)
  1. NORVASC [Suspect]
     Indication: HYPERTENSION
     Dosage: 10 MG BEDTIME PO
     Route: 048
     Dates: start: 20030101, end: 20091115
  2. LIPITOR [Suspect]
     Dosage: 20 MG BEDTIMG PO
     Route: 048
     Dates: start: 20050101, end: 20091115
  3. CADUET [Suspect]

REACTIONS (14)
  - ABASIA [None]
  - ARTHRITIS [None]
  - BALANCE DISORDER [None]
  - BONE DENSITY DECREASED [None]
  - GAIT DISTURBANCE [None]
  - GINGIVITIS [None]
  - IMPAIRED DRIVING ABILITY [None]
  - IMPAIRED WORK ABILITY [None]
  - INTERVERTEBRAL DISC PROTRUSION [None]
  - JAW DISORDER [None]
  - PAIN [None]
  - SCIATICA [None]
  - TINNITUS [None]
  - TOOTH DISORDER [None]
